FAERS Safety Report 15969128 (Version 2)
Quarter: 2019Q3

REPORT INFORMATION
  Report Type: Spontaneous
  Country: JP (occurrence: JP)
  Receive Date: 20190215
  Receipt Date: 20190808
  Transmission Date: 20191004
  Serious: Yes (Hospitalization, Other)
  Sender: FDA-Public Use
  Company Number: JP-ASTRAZENECA-2019SE24783

PATIENT
  Age: 81 Year
  Sex: Female

DRUGS (1)
  1. FASLODEX [Suspect]
     Active Substance: FULVESTRANT
     Indication: BREAST CANCER FEMALE
     Route: 030
     Dates: start: 201802

REACTIONS (3)
  - Acute kidney injury [Recovered/Resolved]
  - Renal function test abnormal [Recovered/Resolved]
  - Anti-neutrophil cytoplasmic antibody positive vasculitis [Unknown]
